FAERS Safety Report 5587103-3 (Version None)
Quarter: 2008Q1

REPORT INFORMATION
  Report Type: 
  Country: None (occurrence: None)
  Receive Date: 20080110
  Receipt Date: 20080103
  Transmission Date: 20080703
  Serious: Yes (Other)
  Sender: FDA-Public Use
  Company Number: B0477251A

PATIENT
  Age: 40 Year
  Sex: Male

DRUGS (5)
  1. PAROXETINE [Suspect]
     Indication: DRUG USE FOR UNKNOWN INDICATION
     Dates: start: 19980217
  2. DIAZEPAM [Concomitant]
     Dates: start: 19970212
  3. AMITRIPTYLINE HCL [Concomitant]
     Dates: start: 19970212
  4. PROZAC [Concomitant]
     Dates: start: 20010117
  5. EFFEXOR [Concomitant]
     Dates: start: 20000222

REACTIONS (8)
  - AGGRESSION [None]
  - AGITATION [None]
  - CONFUSIONAL STATE [None]
  - DIARRHOEA [None]
  - DRUG WITHDRAWAL SYNDROME [None]
  - ELECTRIC SHOCK [None]
  - PANIC ATTACK [None]
  - SENSORY DISTURBANCE [None]
